FAERS Safety Report 14106793 (Version 1)
Quarter: 2017Q4

REPORT INFORMATION
  Report Type: Spontaneous
  Country: US (occurrence: US)
  Receive Date: 20171019
  Receipt Date: 20171019
  Transmission Date: 20180321
  Serious: No
  Sender: FDA-Public Use
  Company Number: US-PFIZER INC-2017451809

PATIENT
  Age: 33 Year
  Sex: Female
  Weight: 80 kg

DRUGS (1)
  1. CLINDAMYCIN PHOSPHATE. [Suspect]
     Active Substance: CLINDAMYCIN PHOSPHATE
     Indication: ACNE
     Dosage: UNK
     Dates: start: 20171017

REACTIONS (5)
  - Accidental exposure to product [Unknown]
  - Eye swelling [Recovering/Resolving]
  - Product leakage [Unknown]
  - Product taste abnormal [Unknown]
  - Burning sensation [Unknown]

NARRATIVE: CASE EVENT DATE: 20171017
